FAERS Safety Report 13985595 (Version 1)
Quarter: 2017Q3

REPORT INFORMATION
  Report Type: Spontaneous
  Country: IT (occurrence: IT)
  Receive Date: 20170919
  Receipt Date: 20170919
  Transmission Date: 20171128
  Serious: Yes (Other)
  Sender: FDA-Public Use
  Company Number: IT-BIOVITRUM-2017IT0851

PATIENT
  Age: 52 Year
  Sex: Male

DRUGS (3)
  1. CANAKINUMAB [Concomitant]
     Active Substance: CANAKINUMAB
     Indication: BEHCET^S SYNDROME
     Dosage: 150 MG/6 WEEK
  2. KINERET [Suspect]
     Active Substance: ANAKINRA
     Indication: BEHCET^S SYNDROME
  3. KINERET [Suspect]
     Active Substance: ANAKINRA

REACTIONS (2)
  - Bladder transitional cell carcinoma [Recovered/Resolved]
  - Urticaria [Recovered/Resolved]
